FAERS Safety Report 6723267-3 (Version None)
Quarter: 2010Q2

REPORT INFORMATION
  Report Type: 
  Country: None (occurrence: None)
  Receive Date: 20100511
  Receipt Date: 20100416
  Transmission Date: 20101027
  Serious: Yes (Hospitalization)
  Sender: FDA-Public Use
  Company Number: JP-SOLVAY-00310002453

PATIENT
  Age: 11 Year
  Sex: Male

DRUGS (4)
  1. DEPROMEL 25  (FLUVOXAMINE MALEATE) [Suspect]
     Indication: DEPRESSION
     Dosage: 25 MILLIGRAM (S)
     Route: 048
     Dates: start: 20100326, end: 20100330
  2. CONCERTA [Concomitant]
  3. CLONAZEPAM [Concomitant]
  4. PYDOXAL (PYRIDOXAL PHOSPHATE) [Concomitant]

REACTIONS (1)
  - NEUROLEPTIC MALIGNANT SYNDROME [None]
